FAERS Safety Report 25055239 (Version 3)
Quarter: 2025Q1

REPORT INFORMATION
  Report Type: Spontaneous
  Country: CA (occurrence: CA)
  Receive Date: 20250308
  Receipt Date: 20250317
  Transmission Date: 20250409
  Serious: Yes (Hospitalization, Other)
  Sender: CELLTRION
  Company Number: CA-PFIZER INC-202500040011

PATIENT

DRUGS (5)
  1. INFLECTRA [Suspect]
     Active Substance: INFLIXIMAB-DYYB
     Indication: Crohn^s disease
     Route: 042
     Dates: start: 20250113
  2. INFLECTRA [Suspect]
     Active Substance: INFLIXIMAB-DYYB
     Route: 042
     Dates: start: 20250306
  3. PANTOPRAZOLE SODIUM [Concomitant]
     Active Substance: PANTOPRAZOLE SODIUM
  4. PULMICORT TURBUHALER [Concomitant]
     Active Substance: BUDESONIDE
  5. RHINOCORT [Concomitant]
     Active Substance: BUDESONIDE

REACTIONS (8)
  - Ear, nose and throat infection [Recovering/Resolving]
  - Toxic shock syndrome [Recovering/Resolving]
  - Acne [Recovering/Resolving]
  - Sinusitis [Recovering/Resolving]
  - Conjunctivitis [Recovering/Resolving]
  - Deafness bilateral [Recovering/Resolving]
  - Tympanic membrane perforation [Recovering/Resolving]
  - Off label use [Unknown]

NARRATIVE: CASE EVENT DATE: 20250301
